FAERS Safety Report 7654061-7 (Version None)
Quarter: 2011Q3

REPORT INFORMATION
  Report Type: 
  Country: None (occurrence: None)
  Receive Date: 20110803
  Receipt Date: 20110722
  Transmission Date: 20111222
  Serious: Yes (Other)
  Sender: FDA-Public Use
  Company Number: PHHY2011US66488

PATIENT

DRUGS (1)
  1. GILENYA [Suspect]
     Route: 048
     Dates: start: 20110128, end: 20110412

REACTIONS (3)
  - LYMPHOPENIA [None]
  - BLOOD PRESSURE DIASTOLIC INCREASED [None]
  - FATIGUE [None]
